FAERS Safety Report 19560428 (Version 1)
Quarter: 2021Q3

REPORT INFORMATION
  Report Type: Spontaneous
  Country: US (occurrence: US)
  Receive Date: 20210715
  Receipt Date: 20210715
  Transmission Date: 20211014
  Serious: No
  Sender: FDA-Public Use
  Company Number: None

PATIENT
  Age: 39 Year
  Sex: Female
  Weight: 108 kg

DRUGS (1)
  1. NEUTROGENA BEACH DEFENSE SPF30 [Suspect]
     Active Substance: AVOBENZONE\HOMOSALATE\OCTISALATE\OCTOCRYLENE\OXYBENZONE
     Indication: PROPHYLAXIS AGAINST SOLAR RADIATION
     Dosage: ?          QUANTITY:5 SPRAY(S);?
     Dates: start: 20210701, end: 20210712

REACTIONS (2)
  - Recalled product administered [None]
  - Unevaluable event [None]

NARRATIVE: CASE EVENT DATE: 20210714
